FAERS Safety Report 9966967 (Version 3)
Quarter: 2014Q2

REPORT INFORMATION
  Report Type: Report from Study
  Country: JP (occurrence: JP)
  Receive Date: 20140305
  Receipt Date: 20140429
  Transmission Date: 20141212
  Serious: Yes (Hospitalization, Other)
  Sender: FDA-Public Use
  Company Number: JP-TAKEDA-2014TJP002232

PATIENT
  Age: 58 Year
  Sex: Male
  Weight: 64 kg

DRUGS (6)
  1. PIOGLITAZONE [Suspect]
     Indication: TYPE 2 DIABETES MELLITUS
     Dosage: 15 MG, 1 DAYS
     Route: 048
     Dates: start: 20121129
  2. HUMALOG [Concomitant]
     Indication: TYPE 2 DIABETES MELLITUS
     Dosage: 16 IU, TID
     Route: 050
     Dates: end: 20130507
  3. HUMALOG [Concomitant]
     Dosage: 4 UT, TID
     Route: 050
     Dates: start: 20130508
  4. LANTUS [Concomitant]
     Indication: TYPE 2 DIABETES MELLITUS
     Dosage: 6 UT, QD
     Route: 050
     Dates: end: 20130713
  5. KINEDAK [Concomitant]
     Dosage: UNK
     Route: 048
  6. GASTER                             /00706001/ [Concomitant]
     Dosage: UNK
     Route: 048

REACTIONS (2)
  - Cerebral infarction [Recovering/Resolving]
  - Cerebral infarction [Recovering/Resolving]
